FAERS Safety Report 11523516 (Version 1)
Quarter: 2015Q3

REPORT INFORMATION
  Report Type: Spontaneous
  Country: US (occurrence: US)
  Receive Date: 20150918
  Receipt Date: 20150918
  Transmission Date: 20151125
  Serious: No
  Sender: FDA-Public Use
  Company Number: US-ROCHE-721111

PATIENT
  Age: 42 Year
  Sex: Male

DRUGS (2)
  1. PEGASYS [Suspect]
     Active Substance: PEGINTERFERON ALFA-2A
     Indication: HEPATITIS C
     Dosage: FORM: PRE-FILLED SYRINGE.
     Route: 058
     Dates: start: 20100721, end: 20100823
  2. COPEGUS [Suspect]
     Active Substance: RIBAVIRIN
     Indication: HEPATITIS C
     Dosage: DIVIDED DOSES.
     Route: 048
     Dates: start: 20100721, end: 20100823

REACTIONS (13)
  - White blood cell count decreased [Unknown]
  - Fatigue [Not Recovered/Not Resolved]
  - Irritability [Not Recovered/Not Resolved]
  - Genital rash [Recovering/Resolving]
  - Asthenia [Unknown]
  - Herpes virus infection [Not Recovered/Not Resolved]
  - Lip disorder [Unknown]
  - Pain [Unknown]
  - Bone pain [Not Recovered/Not Resolved]
  - Insomnia [Unknown]
  - Blister [Recovered/Resolved]
  - Eating disorder [Unknown]
  - Insomnia [Not Recovered/Not Resolved]

NARRATIVE: CASE EVENT DATE: 201007
